FAERS Safety Report 7918694-2 (Version None)
Quarter: 2011Q4

REPORT INFORMATION
  Report Type: 
  Country: None (occurrence: None)
  Receive Date: 20111116
  Receipt Date: 20111109
  Transmission Date: 20120403
  Serious: Yes (Other)
  Sender: FDA-Public Use
  Company Number: US-PFIZER INC-2011151920

PATIENT
  Sex: Male
  Weight: 95.238 kg

DRUGS (11)
  1. CHANTIX [Suspect]
     Indication: SMOKING CESSATION THERAPY
     Dosage: 0.5 MG, DAILY
     Route: 048
     Dates: start: 20110501, end: 20110101
  2. CHANTIX [Suspect]
     Dosage: UNK
     Route: 048
     Dates: start: 20110101, end: 20110101
  3. PLETAL [Concomitant]
     Dosage: UNK
  4. PRAVACHOL [Concomitant]
     Indication: BLOOD CHOLESTEROL ABNORMAL
     Dosage: 80 MG, DAILY
  5. PLAVIX [Concomitant]
     Dosage: UNK
  6. ZIAC [Concomitant]
     Dosage: UNK
  7. ASPIRIN [Concomitant]
     Indication: PAIN
     Dosage: 325 MG, 2X/DAY
  8. COZAAR [Concomitant]
     Indication: HYPERTENSION
     Dosage: 50 MG, DAILY
  9. COZAAR [Concomitant]
     Dosage: 100 MG, UNK
  10. LIPITOR [Concomitant]
     Dosage: UNK
  11. PLAVIX [Concomitant]
     Dosage: 75 MG, DAILY

REACTIONS (6)
  - BLOOD PRESSURE DECREASED [None]
  - SEDATION [None]
  - HYPERSOMNIA [None]
  - ABNORMAL DREAMS [None]
  - FEELING OF RELAXATION [None]
  - HEART RATE DECREASED [None]
